FAERS Safety Report 11594517 (Version 1)
Quarter: 2015Q4

REPORT INFORMATION
  Report Type: Spontaneous
  Country: FR (occurrence: FR)
  Receive Date: 20151005
  Receipt Date: 20151005
  Transmission Date: 20160304
  Serious: Yes (Hospitalization)
  Sender: FDA-Public Use
  Company Number: FR-FRESENIUS KABI-FK201504731

PATIENT
  Age: 46 Year
  Sex: Female

DRUGS (7)
  1. MELPHALAN [Concomitant]
     Active Substance: MELPHALAN
     Dates: start: 20150720
  2. CYTARABINE INJECTION [Suspect]
     Active Substance: CYTARABINE
     Indication: MANTLE CELL LYMPHOMA
     Route: 065
     Dates: start: 20150714, end: 20150719
  3. LUTENYL [Concomitant]
     Active Substance: NOMEGESTROL ACETATE
     Indication: ORAL CONTRACEPTION
     Dates: start: 20150716
  4. EMEND [Suspect]
     Active Substance: APREPITANT
     Indication: MANTLE CELL LYMPHOMA
     Dates: start: 20150714, end: 20150719
  5. LEVACT [Suspect]
     Active Substance: BENDAMUSTINE HYDROCHLORIDE
     Indication: MANTLE CELL LYMPHOMA
     Dates: start: 20150714, end: 20150719
  6. ETOPOSIDE MERCK [Suspect]
     Active Substance: ETOPOSIDE
     Indication: MANTLE CELL LYMPHOMA
     Dates: start: 20150714, end: 20150719
  7. PRIMPERAN [Concomitant]
     Active Substance: METOCLOPRAMIDE HYDROCHLORIDE

REACTIONS (1)
  - Drug reaction with eosinophilia and systemic symptoms [Recovered/Resolved]

NARRATIVE: CASE EVENT DATE: 20150727
